FAERS Safety Report 18307532 (Version 5)
Quarter: 2020Q4

REPORT INFORMATION
  Report Type: Spontaneous
  Country: FR (occurrence: FR)
  Receive Date: 20200924
  Receipt Date: 20201029
  Transmission Date: 20210113
  Serious: Yes (Hospitalization, Other)
  Sender: FDA-Public Use
  Company Number: FR-PFIZER INC-2020366835

PATIENT
  Age: 64 Year
  Sex: Male
  Weight: 71 kg

DRUGS (11)
  1. PANTOPRAZOLE [Suspect]
     Active Substance: PANTOPRAZOLE
     Indication: ULCER
     Dosage: 20 MG, 1X/DAY
     Route: 048
     Dates: start: 20200720
  2. DEXAMETHASONE. [Suspect]
     Active Substance: DEXAMETHASONE
     Indication: COVID-19 PNEUMONIA
     Dosage: 4 MG, 1X/DAY
     Route: 042
     Dates: start: 20200721
  3. LEDERFOLINE [Suspect]
     Active Substance: LEUCOVORIN CALCIUM
     Dosage: 25 MG, WEEKLY
     Dates: start: 202007
  4. LOVENOX [Suspect]
     Active Substance: ENOXAPARIN SODIUM
     Indication: THROMBOSIS PROPHYLAXIS
     Dosage: 0.2 ML, 2X/DAY (0.2 ML MORNING AND EVENING)
     Route: 042
     Dates: start: 20200720
  5. CYMEVAN [Suspect]
     Active Substance: GANCICLOVIR
     Indication: CYTOMEGALOVIRUS INFECTION
     Dosage: 250 MG, 2X/DAY
     Route: 042
     Dates: start: 20200711, end: 20200723
  6. BACTRIM [Suspect]
     Active Substance: SULFAMETHOXAZOLE\TRIMETHOPRIM
     Indication: NEUTROPENIA
     Dosage: 1 DF, CYCLIC (800/160 MG, 1 TABLET 3/WEEK)
     Route: 048
     Dates: start: 20200708, end: 20200722
  7. DEXAMETHASONE. [Suspect]
     Active Substance: DEXAMETHASONE
     Indication: CORONAVIRUS INFECTION
  8. XATRAL [Suspect]
     Active Substance: ALFUZOSIN
     Indication: ANXIETY
     Dosage: 2.5 MG, 1X/DAY
     Route: 048
     Dates: start: 20200720
  9. PARACETAMOL [Suspect]
     Active Substance: ACETAMINOPHEN
     Dosage: 3 G
     Route: 065
     Dates: start: 20200720
  10. LACTULOSE. [Suspect]
     Active Substance: LACTULOSE
     Indication: GASTROINTESTINAL MOTILITY DISORDER
     Dosage: 2 DF, 1X/DAY
     Route: 065
     Dates: start: 20200720
  11. CEFTRIAXONE SODIUM. [Suspect]
     Active Substance: CEFTRIAXONE SODIUM
     Dosage: 1 G, 1X/DAY
     Route: 042
     Dates: start: 20200506, end: 20200720

REACTIONS (10)
  - White blood cell count increased [Recovered/Resolved]
  - Leukopenia [Not Recovered/Not Resolved]
  - Neutropenia [Not Recovered/Not Resolved]
  - Disease recurrence [Not Recovered/Not Resolved]
  - Off label use [Unknown]
  - Neutrophil count increased [Recovered/Resolved]
  - Product use issue [Unknown]
  - Lymphopenia [Not Recovered/Not Resolved]
  - Haemoglobin decreased [Not Recovered/Not Resolved]
  - Thrombocytopenia [Not Recovered/Not Resolved]

NARRATIVE: CASE EVENT DATE: 202007
